APPROVED DRUG PRODUCT: ETHYOL
Active Ingredient: AMIFOSTINE
Strength: 500MG/VIAL **Federal Register determination that product was not discontinued or withdrawn for safety or effectiveness reasons**
Dosage Form/Route: INJECTABLE;INJECTION
Application: N020221 | Product #001
Applicant: COSETTE PHARMACEUTICALS INC
Approved: Dec 8, 1995 | RLD: Yes | RS: No | Type: DISCN